FAERS Safety Report 5694424-2 (Version None)
Quarter: 2008Q2

REPORT INFORMATION
  Report Type: 
  Country: None (occurrence: None)
  Receive Date: 20080404
  Receipt Date: 20080331
  Transmission Date: 20081010
  Serious: Yes (Life-Threatening, Other)
  Sender: FDA-Public Use
  Company Number: PHRM2008FR01142

PATIENT
  Age: 82 Year
  Sex: Male

DRUGS (1)
  1. LEPONEX [Suspect]
     Indication: ABNORMAL BEHAVIOUR
     Dosage: 25 MG, TID
     Route: 048
     Dates: start: 20080107, end: 20080303

REACTIONS (8)
  - BLOOD PRESSURE IMMEASURABLE [None]
  - BRADYCARDIA [None]
  - CARDIAC ARREST [None]
  - CARDIAC MASSAGE [None]
  - EXTRASYSTOLES [None]
  - LOSS OF CONSCIOUSNESS [None]
  - PULSE ABSENT [None]
  - RESPIRATORY ARREST [None]
